FAERS Safety Report 11950847 (Version 1)
Quarter: 2016Q1

REPORT INFORMATION
  Report Type: Spontaneous
  Country: US (occurrence: None)
  Receive Date: 20160122
  Receipt Date: 20160122
  Transmission Date: 20160526
  Serious: No
  Sender: FDA-Public Use
  Company Number: None

PATIENT

DRUGS (2)
  1. CARBIDOPA AND LEVODOPA EXTENDED RELEASE [Suspect]
     Active Substance: CARBIDOPA\LEVODOPA
  2. CARBIDOPA AND LEVODOPA CARBIDOPA/LEVODOPA [Suspect]
     Active Substance: CARBIDOPA\LEVODOPA

REACTIONS (3)
  - Wrong drug administered [None]
  - Drug dispensing error [None]
  - Dyskinesia [None]
